FAERS Safety Report 16314097 (Version 1)
Quarter: 2019Q2

REPORT INFORMATION
  Report Type: Spontaneous
  Country: US (occurrence: US)
  Receive Date: 20190514
  Receipt Date: 20190514
  Transmission Date: 20190711
  Serious: Yes (Other)
  Sender: FDA-Public Use
  Company Number: None

PATIENT
  Age: 45 Year
  Sex: Male
  Weight: 119.25 kg

DRUGS (1)
  1. LOSARTAN-HYDROCHLOROTHIAZIDE [Suspect]
     Active Substance: HYDROCHLOROTHIAZIDE\LOSARTAN
     Indication: HYPERTENSION
     Route: 048
     Dates: start: 20160829, end: 20190507

REACTIONS (2)
  - Metastases to lymph nodes [None]
  - Superficial spreading melanoma stage IV [None]

NARRATIVE: CASE EVENT DATE: 20180720
